FAERS Safety Report 5074683-X (Version None)
Quarter: 2006Q3

REPORT INFORMATION
  Report Type: 
  Country: None (occurrence: None)
  Receive Date: 20060803
  Receipt Date: 20060717
  Transmission Date: 20061208
  Serious: Yes (Other)
  Sender: FDA-Public Use
  Company Number: US_0409105428

PATIENT
  Age: 11 Year
  Sex: Male
  Weight: 28.6 kg

DRUGS (3)
  1. STRATTERA [Suspect]
     Indication: ATTENTION DEFICIT/HYPERACTIVITY DISORDER
     Dosage: 25 MG, DAILY (1/D); SEE IMAGE
     Dates: start: 20021215, end: 20030729
  2. STRATTERA [Suspect]
     Indication: ATTENTION DEFICIT/HYPERACTIVITY DISORDER
     Dosage: 25 MG, DAILY (1/D); SEE IMAGE
     Dates: start: 20030729, end: 20040101
  3. CLONIDINE [Concomitant]

REACTIONS (24)
  - ABNORMAL BEHAVIOUR [None]
  - BODY TEMPERATURE INCREASED [None]
  - CONVULSION [None]
  - COORDINATION ABNORMAL [None]
  - DECREASED APPETITE [None]
  - DISTRACTIBILITY [None]
  - DYSGRAPHIA [None]
  - FATIGUE [None]
  - GRAND MAL CONVULSION [None]
  - HEAD INJURY [None]
  - HYPOAESTHESIA [None]
  - HYPOTONIA [None]
  - IMPULSIVE BEHAVIOUR [None]
  - INSOMNIA [None]
  - MEMORY IMPAIRMENT [None]
  - METABOLIC DISORDER [None]
  - MUSCULAR WEAKNESS [None]
  - MYOCLONUS [None]
  - NERVOUSNESS [None]
  - ORAL MUCOSAL PETECHIAE [None]
  - PHARYNGEAL ERYTHEMA [None]
  - SELF ESTEEM DECREASED [None]
  - SLEEP WALKING [None]
  - VOMITING [None]
